FAERS Safety Report 16286502 (Version 1)
Quarter: 2019Q2

REPORT INFORMATION
  Report Type: Spontaneous
  Country: US (occurrence: US)
  Receive Date: 20190508
  Receipt Date: 20190508
  Transmission Date: 20190711
  Serious: No
  Sender: FDA-Public Use
  Company Number: US-JNJFOC-20190419002

PATIENT
  Age: 81 Year
  Sex: Male

DRUGS (4)
  1. SUDAFED PE CONGESTION [Suspect]
     Active Substance: PHENYLEPHRINE HYDROCHLORIDE
     Indication: SINUS CONGESTION
     Dosage: 1 DOSE EVERY 4-6 HOURS FOR ABOUT A MONTH AGO OR LONGER
     Route: 048
  2. SUDAFED NASAL DECONGESTANT MAXIMUM STRENGTH [Suspect]
     Active Substance: PSEUDOEPHEDRINE HYDROCHLORIDE
     Indication: RESPIRATORY DISORDER
     Dosage: 2 DOSES OF 30 MG, 4-6 HOURS FOR ABOUT A MONTH AGO OR LONGER
     Route: 048
  3. SUDAFED PE CONGESTION [Suspect]
     Active Substance: PHENYLEPHRINE HYDROCHLORIDE
     Indication: RESPIRATORY DISORDER
     Dosage: 1 DOSE EVERY 4-6 HOURS FOR ABOUT A MONTH AGO OR LONGER
     Route: 048
  4. SUDAFED NASAL DECONGESTANT MAXIMUM STRENGTH [Suspect]
     Active Substance: PSEUDOEPHEDRINE HYDROCHLORIDE
     Indication: SINUS CONGESTION
     Dosage: 2 DOSES OF 30 MG, 4-6 HOURS FOR ABOUT A MONTH AGO OR LONGER
     Route: 048

REACTIONS (4)
  - Product expiration date issue [Unknown]
  - Peripheral swelling [Unknown]
  - Product use in unapproved indication [Unknown]
  - Therapeutic response unexpected [Unknown]
